FAERS Safety Report 15841758 (Version 2)
Quarter: 2019Q3

REPORT INFORMATION
  Report Type: Spontaneous
  Country: DE (occurrence: DE)
  Receive Date: 20190118
  Receipt Date: 20190911
  Transmission Date: 20191004
  Serious: Yes (Hospitalization, Other)
  Sender: FDA-Public Use
  Company Number: DE-TEVA-2019-DE-997853

PATIENT
  Age: 35 Year
  Sex: Female

DRUGS (1)
  1. COPAXONE [Suspect]
     Active Substance: GLATIRAMER ACETATE
     Dosage: 20 MILLIGRAM DAILY;
     Route: 058
     Dates: start: 20180604, end: 2019

REACTIONS (8)
  - Dyspnoea [Recovered/Resolved]
  - Nausea [Recovered/Resolved]
  - Hypersensitivity [Recovered/Resolved]
  - Swelling [Recovered/Resolved]
  - Hospitalisation [Recovered/Resolved]
  - Dizziness [Recovered/Resolved]
  - Swollen tongue [Recovered/Resolved]
  - Adverse event [Unknown]

NARRATIVE: CASE EVENT DATE: 201901
